FAERS Safety Report 5571073-8 (Version None)
Quarter: 2007Q4

REPORT INFORMATION
  Report Type: 
  Country: None (occurrence: None)
  Receive Date: 20071221
  Receipt Date: 20071212
  Transmission Date: 20080405
  Serious: Yes (Other)
  Sender: FDA-Public Use
  Company Number: JP-ASTRAZENECA-2007AP07867

PATIENT
  Age: 57 Year
  Sex: Male

DRUGS (4)
  1. DIPRIVAN KIT [Suspect]
     Indication: SEDATION
     Route: 042
     Dates: start: 20071110, end: 20071206
  2. MEROPEN [Suspect]
     Route: 042
  3. MEROPEN [Suspect]
     Route: 042
     Dates: start: 20071126
  4. AMIODARONE HCL [Suspect]
     Route: 065

REACTIONS (2)
  - DISORIENTATION [None]
  - LIVER FUNCTION TEST ABNORMAL [None]
